FAERS Safety Report 8928175 (Version 5)
Quarter: 2013Q1

REPORT INFORMATION
  Report Type: Spontaneous
  Country: TW (occurrence: TW)
  Receive Date: 20121128
  Receipt Date: 20130207
  Transmission Date: 20140127
  Serious: Yes (Other)
  Sender: FDA-Public Use
  Company Number: PHHY2012TW105249

PATIENT
  Sex: Female
  Weight: 50 kg

DRUGS (1)
  1. SEBIVO [Suspect]
     Indication: HEPATITIS B
     Dosage: 600 MG, QD
     Route: 048
     Dates: start: 20110705, end: 20121110

REACTIONS (5)
  - Weight decreased [Recovering/Resolving]
  - Cold sweat [Recovered/Resolved]
  - Muscular weakness [Recovering/Resolving]
  - Headache [Recovered/Resolved]
  - Enzyme abnormality [Unknown]
